FAERS Safety Report 22082946 (Version 3)
Quarter: 2024Q2

REPORT INFORMATION
  Report Type: Report from Study
  Country: PL (occurrence: PL)
  Receive Date: 20230310
  Receipt Date: 20240430
  Transmission Date: 20240716
  Serious: Yes (Hospitalization, Other)
  Sender: FDA-Public Use
  Company Number: PL-002147023-NVSC2023PL053729

PATIENT
  Sex: Female

DRUGS (1)
  1. KISQALI [Suspect]
     Active Substance: RIBOCICLIB
     Indication: Breast cancer metastatic
     Dosage: 600 MG, QD
     Route: 048
     Dates: start: 20221123

REACTIONS (6)
  - Hyperkalaemia [Unknown]
  - Respiratory syncytial virus infection [Unknown]
  - COVID-19 [Unknown]
  - Electrolyte imbalance [Unknown]
  - Metastases to central nervous system [Unknown]
  - Gastrointestinal infection [Unknown]
